FAERS Safety Report 14399515 (Version 2)
Quarter: 2018Q1

REPORT INFORMATION
  Report Type: Spontaneous
  Country: US (occurrence: US)
  Receive Date: 20180117
  Receipt Date: 20180204
  Transmission Date: 20180509
  Serious: No
  Sender: FDA-Public Use
  Company Number: US-JNJFOC-20180103250

PATIENT
  Sex: Female
  Weight: 72.58 kg

DRUGS (4)
  1. XARELTO [Suspect]
     Active Substance: RIVAROXABAN
     Indication: HEART VALVE INCOMPETENCE
     Route: 048
     Dates: start: 2015
  2. XARELTO [Suspect]
     Active Substance: RIVAROXABAN
     Indication: ATRIAL ENLARGEMENT
     Route: 048
     Dates: start: 2015
  3. CARDIZEM [Concomitant]
     Active Substance: DILTIAZEM HYDROCHLORIDE
     Indication: ATRIAL ENLARGEMENT
     Route: 065
  4. CARDIZEM [Concomitant]
     Active Substance: DILTIAZEM HYDROCHLORIDE
     Indication: HEART VALVE INCOMPETENCE
     Route: 065

REACTIONS (5)
  - Body height decreased [Not Recovered/Not Resolved]
  - Off label use [Unknown]
  - Product packaging issue [Unknown]
  - Arthritis [Not Recovered/Not Resolved]
  - Product use in unapproved indication [Unknown]

NARRATIVE: CASE EVENT DATE: 2015
